FAERS Safety Report 20969235 (Version 1)
Quarter: 2022Q2

REPORT INFORMATION
  Report Type: Spontaneous
  Country: US (occurrence: US)
  Receive Date: 20220616
  Receipt Date: 20220616
  Transmission Date: 20220721
  Serious: No
  Sender: FDA-Public Use
  Company Number: US-SK LIFE SCIENCE, INC-SKPVG-2022-000156

PATIENT

DRUGS (6)
  1. XCOPRI [Suspect]
     Active Substance: CENOBAMATE
     Indication: Epilepsy
     Dosage: 12.5/25MG, 1ST PACK
     Route: 065
     Dates: start: 20210203
  2. XCOPRI [Suspect]
     Active Substance: CENOBAMATE
     Dosage: 50/100MG. 2ND PACK
     Route: 065
     Dates: start: 20210310
  3. XCOPRI [Suspect]
     Active Substance: CENOBAMATE
     Dosage: 200 MILLIGRAM, QD, 3RD PACK
     Route: 065
     Dates: start: 20210408
  4. BRIVIACT [Concomitant]
     Active Substance: BRIVARACETAM
     Indication: Product used for unknown indication
     Dosage: 100 MILLIGRAM, BID
     Route: 065
  5. OXCARBAZEPINE [Concomitant]
     Active Substance: OXCARBAZEPINE
     Indication: Product used for unknown indication
     Dosage: 600 MILLIGRAM, BID
     Route: 065
  6. ONFI [Concomitant]
     Active Substance: CLOBAZAM
     Indication: Product used for unknown indication
     Dosage: 5 MILLIGRAM, BID
     Route: 065

REACTIONS (1)
  - Palpitations [Recovered/Resolved]

NARRATIVE: CASE EVENT DATE: 20210701
